FAERS Safety Report 21039124 (Version 4)
Quarter: 2023Q1

REPORT INFORMATION
  Report Type: Spontaneous
  Country: US (occurrence: US)
  Receive Date: 20220704
  Receipt Date: 20230308
  Transmission Date: 20230418
  Serious: Yes (Life-Threatening, Hospitalization, Disabling)
  Sender: FDA-Public Use
  Company Number: US-AMERICAN REGENT INC-2022001826

PATIENT
  Sex: Female
  Weight: 64.853 kg

DRUGS (61)
  1. INJECTAFER [Suspect]
     Active Substance: FERRIC CARBOXYMALTOSE
     Indication: Iron deficiency anaemia
     Dosage: 750 MG IN 100 ML 0.9% NACL
     Route: 042
     Dates: start: 20190724, end: 20190724
  2. INJECTAFER [Suspect]
     Active Substance: FERRIC CARBOXYMALTOSE
     Dosage: 750 MG IN 100 ML 0.9% NACL
     Route: 042
     Dates: start: 20190731, end: 20190731
  3. SUCRALFATE [Suspect]
     Active Substance: SUCRALFATE
     Indication: Product used for unknown indication
     Dosage: 1 GRAM, BID
     Route: 048
  4. SUCRALFATE [Suspect]
     Active Substance: SUCRALFATE
     Dosage: 10 ML AT BEDTIME ON AN EMPTY STOMACH BEFORE MEATS ORALLY TWICE A DAY
     Route: 048
  5. SUCRALFATE [Suspect]
     Active Substance: SUCRALFATE
     Dosage: 1 GM TABLET AT BEDTIME ON AN EMPTY STOMACH BEFORE MEALS ORALLY QID
     Route: 048
  6. PEPCID [Suspect]
     Active Substance: FAMOTIDINE
     Indication: Premedication
     Dosage: 20 MILLIGRAM, SINGLE
     Route: 042
     Dates: start: 20190724, end: 20190724
  7. PEPCID [Suspect]
     Active Substance: FAMOTIDINE
     Dosage: 20 MILLIGRAM, SINGLE
     Dates: start: 20190731, end: 20190731
  8. PEPCID [Suspect]
     Active Substance: FAMOTIDINE
     Dosage: 20 MG IN 50ML
     Route: 042
     Dates: start: 20190731, end: 20190731
  9. PEPCID [Suspect]
     Active Substance: FAMOTIDINE
     Dosage: 20 MILLIGRAM, BID
     Route: 048
  10. PANTOPRAZOLE SODIUM [Suspect]
     Active Substance: PANTOPRAZOLE SODIUM
     Indication: Gastrooesophageal reflux disease
     Dosage: 40 MILLIGRAM, QD (30 MINS BEFORE BREAKFAST)
     Route: 048
  11. PANTOPRAZOLE SODIUM [Suspect]
     Active Substance: PANTOPRAZOLE SODIUM
     Dosage: 40 MILLIGRAM, BID
     Route: 048
  12. PANTOPRAZOLE SODIUM [Suspect]
     Active Substance: PANTOPRAZOLE SODIUM
     Dosage: 20 MILLIGRAM, QD
     Route: 048
  13. PANTOPRAZOLE SODIUM [Suspect]
     Active Substance: PANTOPRAZOLE SODIUM
     Dosage: 20 MILLIGRAM, BID
     Route: 048
  14. OMEPRAZOLE [Suspect]
     Active Substance: OMEPRAZOLE
     Indication: Gastrooesophageal reflux disease
     Dosage: 40 MILLIGRAM, BID (DELAYED RELEASE)
     Route: 048
  15. OMEPRAZOLE [Suspect]
     Active Substance: OMEPRAZOLE
     Dosage: 1 CAP, BID
     Route: 048
  16. OMEPRAZOLE [Suspect]
     Active Substance: OMEPRAZOLE
     Dosage: 2.5 MG PACKS- 4 PACKS ONCE DIALY
     Route: 048
  17. TYLENOL [Concomitant]
     Active Substance: ACETAMINOPHEN
     Indication: Premedication
     Dosage: 650 MILLIGRAM, SINGLE
     Route: 048
     Dates: start: 20190724, end: 20190724
  18. TYLENOL [Concomitant]
     Active Substance: ACETAMINOPHEN
     Dosage: 650 MILLIGRAM, SINGLE
     Route: 048
     Dates: start: 20190731, end: 20190731
  19. BENADRYL [Concomitant]
     Active Substance: DIPHENHYDRAMINE HYDROCHLORIDE
     Indication: Premedication
     Dosage: 25 MILLIGRAM, QD
     Dates: start: 20190724, end: 20190724
  20. BENADRYL [Concomitant]
     Active Substance: DIPHENHYDRAMINE HYDROCHLORIDE
     Dosage: 25 MILLIGRAM, QD
     Dates: start: 20190731, end: 20190731
  21. SOLU-MEDROL [Concomitant]
     Active Substance: METHYLPREDNISOLONE SODIUM SUCCINATE
     Indication: Premedication
     Dosage: 125 MILLIGRAM, QD
     Dates: start: 20190724, end: 20190724
  22. SOLU-MEDROL [Concomitant]
     Active Substance: METHYLPREDNISOLONE SODIUM SUCCINATE
     Dosage: 125 MILLIGRAM, QD
     Dates: start: 20190731, end: 20190731
  23. ONDANSETRON [Concomitant]
     Active Substance: ONDANSETRON
     Indication: Premedication
     Dosage: 4 MILLIGRAM, SINGLE
     Dates: start: 20190731, end: 20190731
  24. LUBIPROSTONE [Concomitant]
     Active Substance: LUBIPROSTONE
     Indication: Product used for unknown indication
     Dosage: 24 MICROGRAM, BID
     Route: 048
  25. LUBIPROSTONE [Concomitant]
     Active Substance: LUBIPROSTONE
     Dosage: 24 MICROGRAM, BID
     Route: 048
  26. LUBIPROSTONE [Concomitant]
     Active Substance: LUBIPROSTONE
     Dosage: 8 MICROGRAM, BID WITH FOOD
     Route: 048
  27. AMITRIPTYLINE [Concomitant]
     Active Substance: AMITRIPTYLINE
     Indication: Product used for unknown indication
     Dosage: 10 MILLIGRAM, QHS
     Route: 048
  28. BETAMETHASONE VALERATE [Concomitant]
     Active Substance: BETAMETHASONE VALERATE
     Indication: Product used for unknown indication
     Dosage: UNK
     Route: 061
  29. CEPHALEXIN [Concomitant]
     Active Substance: CEPHALEXIN
     Indication: Product used for unknown indication
     Dosage: 500 MILLIGRAM, TID
     Route: 048
  30. CYANOCOBALAMIN [Concomitant]
     Active Substance: CYANOCOBALAMIN
     Indication: Anaemia
     Dosage: 1 MILLILITER EVERY MONTH
     Route: 058
  31. CYCLOBENZAPRINE [Concomitant]
     Active Substance: CYCLOBENZAPRINE
     Indication: Product used for unknown indication
     Dosage: 5 MILLIGRAM, QPM PRN
     Route: 048
  32. FERROUS SULFATE [Concomitant]
     Active Substance: FERROUS SULFATE
     Indication: Product used for unknown indication
     Dosage: 325 MG (65 MG IRON), EVERY OTHER DAY
     Route: 048
  33. FERROUS SULFATE [Concomitant]
     Active Substance: FERROUS SULFATE
     Dosage: 325 MILLIGRAM, QD
     Route: 048
  34. FLUTICASONE PROPIONATE [Concomitant]
     Active Substance: FLUTICASONE PROPIONATE
     Indication: Product used for unknown indication
     Dosage: SPRAY 1 SPRAY(S) EVERY DAY BY INTRANASAL ROUTE
     Route: 045
  35. LISINOPRIL [Concomitant]
     Active Substance: LISINOPRIL
     Indication: Product used for unknown indication
     Dosage: 10 MILLIGRAM, QD
     Route: 048
  36. LISINOPRIL [Concomitant]
     Active Substance: LISINOPRIL
     Dosage: 10 MILLIGRAM, QD
     Route: 048
  37. LORAZEPAM [Concomitant]
     Active Substance: LORAZEPAM
     Indication: Anxiety
     Dosage: 1 MILLIGRAM, QD, PRN
     Route: 048
  38. LORAZEPAM [Concomitant]
     Active Substance: LORAZEPAM
     Dosage: 1 MILLIGRAM, DAILY PRN
     Route: 048
  39. METOPROLOL TARTRATE [Concomitant]
     Active Substance: METOPROLOL TARTRATE
     Indication: Product used for unknown indication
     Dosage: UNK MILLIGRAM
     Route: 048
  40. METOPROLOL TARTRATE [Concomitant]
     Active Substance: METOPROLOL TARTRATE
     Dosage: 0.5 TAB, BID
     Route: 048
  41. OXCARBAZEPINE [Concomitant]
     Active Substance: OXCARBAZEPINE
     Indication: Product used for unknown indication
     Dosage: UNK, DOSAGE FORM: 300 MG TABLET
     Route: 048
  42. OXCARBAZEPINE [Concomitant]
     Active Substance: OXCARBAZEPINE
     Dosage: 150 MILLIGRAM, QD
     Route: 048
  43. PAROXETINE [Concomitant]
     Active Substance: PAROXETINE
     Indication: Product used for unknown indication
     Dosage: 20 MILLIGRAM, QD IN THE MORNING
     Route: 048
  44. PAROXETINE [Concomitant]
     Active Substance: PAROXETINE
     Dosage: 1 TAB, QD
     Route: 048
  45. PAROXETINE [Concomitant]
     Active Substance: PAROXETINE
     Dosage: 10 MILLIGRAM, IN THE MORNING
     Route: 048
  46. PROAIR HFA [Concomitant]
     Active Substance: ALBUTEROL SULFATE
     Indication: Product used for unknown indication
     Dosage: INHALE 2 PUFF(S) EVERY 4 HOURS BY INHALATION ROUTE
  47. ROPINIROLE [Concomitant]
     Active Substance: ROPINIROLE
     Indication: Product used for unknown indication
     Dosage: UNK, DOSAGE FORM: 0.5 MG TABLET
     Route: 048
  48. ROPINIROLE [Concomitant]
     Active Substance: ROPINIROLE
     Dosage: 0.5 MILLIGRAM, QHS
     Route: 048
  49. ROPINIROLE [Concomitant]
     Active Substance: ROPINIROLE
     Dosage: 1 MILLIGRAM, 1 TO 3 HOURS BEFORE BEDTIME
     Route: 048
  50. VITAMIN D3 [Concomitant]
     Active Substance: CHOLECALCIFEROL
     Indication: Vitamin D deficiency
     Dosage: 6000 INTERNATIONAL UNIT, QD
     Route: 048
  51. MIRALAX [Concomitant]
     Active Substance: POLYETHYLENE GLYCOL 3350
     Indication: Product used for unknown indication
     Dosage: TAKE 2 CAPFULS IN 8 OZ OF WATER ORALLY ONCE A DAY
     Route: 048
  52. LIDOCAINE [Concomitant]
     Active Substance: LIDOCAINE
     Indication: Product used for unknown indication
     Dosage: 15 ML TO AFFECTED AREA AS NEEDED MOUTH/THROAT EVERY 3 HRS
     Route: 048
  53. PREPARATION H [PHENYLEPHRINE HYDROCHLORIDE;THEOBROMA CACAO OIL] [Concomitant]
     Indication: Product used for unknown indication
     Dosage: AS DIRECTED BID PRN
     Route: 054
  54. CALTRATE WITH VITAMIN D [Concomitant]
     Active Substance: CALCIUM CARBONATE\CHOLECALCIFEROL
     Indication: Product used for unknown indication
     Dosage: 1 TABLET WITH MEALS, BID
     Route: 048
  55. TOPAMAX [Concomitant]
     Active Substance: TOPIRAMATE
     Indication: Product used for unknown indication
     Dosage: 25 MG, 1 TAB TWICE DAILY (NOTES: ONCE DAILY)
     Route: 048
  56. FIBERCON [Concomitant]
     Active Substance: CALCIUM POLYCARBOPHIL
     Indication: Product used for unknown indication
     Dosage: 2 TABLETS THREE TIMES DAILY, PRN
     Route: 048
  57. FIBERCON [Concomitant]
     Active Substance: CALCIUM POLYCARBOPHIL
     Dosage: 1 DOSAGE FORM FOUR TIMES DAILY, PRN
     Route: 048
  58. ZESTORETIC [Concomitant]
     Active Substance: HYDROCHLOROTHIAZIDE\LISINOPRIL
     Indication: Product used for unknown indication
     Dosage: 10-12.5 MG QD
     Route: 048
  59. ZOCOR [Concomitant]
     Active Substance: SIMVASTATIN
     Indication: Product used for unknown indication
     Dosage: 20 MILLIGRAM, IN THE EVENING
     Route: 048
  60. ZONISAMIDE [Concomitant]
     Active Substance: ZONISAMIDE
     Indication: Product used for unknown indication
     Dosage: 100 MILLIGRAM, QD
     Route: 048
  61. DEXILANT [Concomitant]
     Active Substance: DEXLANSOPRAZOLE
     Indication: Product used for unknown indication
     Dosage: 60 MILLIGRAM, QD AS DIRECTED
     Route: 048

REACTIONS (18)
  - Muscle spasms [Unknown]
  - Asthenia [Not Recovered/Not Resolved]
  - Malaise [Unknown]
  - Pain [Not Recovered/Not Resolved]
  - Myalgia [Not Recovered/Not Resolved]
  - Respiratory distress [Not Recovered/Not Resolved]
  - Stress [Not Recovered/Not Resolved]
  - Anxiety [Not Recovered/Not Resolved]
  - Hypophosphataemia [Recovered/Resolved]
  - Palpitations [Unknown]
  - Presyncope [Unknown]
  - Tachycardia [Unknown]
  - Arthralgia [Not Recovered/Not Resolved]
  - Dyspnoea [Not Recovered/Not Resolved]
  - Dizziness [Not Recovered/Not Resolved]
  - Anhedonia [Not Recovered/Not Resolved]
  - Emotional distress [Not Recovered/Not Resolved]
  - Product quality issue [Unknown]

NARRATIVE: CASE EVENT DATE: 20190101
